FAERS Safety Report 9836636 (Version 1)
Quarter: 2014Q1

REPORT INFORMATION
  Report Type: Spontaneous
  Country: US (occurrence: None)
  Receive Date: 20140116
  Receipt Date: 20140116
  Transmission Date: 20141002
  Serious: Yes (Hospitalization)
  Sender: FDA-Public Use
  Company Number: None

PATIENT
  Age: 55 Year
  Sex: Female

DRUGS (9)
  1. TECFIDERA [Suspect]
     Indication: MULTIPLE SCLEROSIS
     Route: 048
     Dates: start: 20130401, end: 20140115
  2. NIFEDIPINE [Concomitant]
  3. ALISKIREN FUMARATE (TEKTURNA) [Concomitant]
  4. BABY ASPIRIN [Concomitant]
  5. CALCIUM [Concomitant]
  6. CENTRUM [Concomitant]
  7. FISH OIL [Concomitant]
  8. LABETALOL HCL [Concomitant]
  9. PROBIOTIC [Concomitant]

REACTIONS (3)
  - Lung abscess [None]
  - Streptococcus test positive [None]
  - Tooth disorder [None]
